FAERS Safety Report 6542953-1 (Version None)
Quarter: 2010Q1

REPORT INFORMATION
  Report Type: 
  Country: None (occurrence: None)
  Receive Date: 20100120
  Receipt Date: 20100105
  Transmission Date: 20100710
  Serious: Yes (Life-Threatening)
  Sender: FDA-Public Use
  Company Number: NL-TYCO HEALTHCARE/MALLINCKRODT-T200900822

PATIENT

DRUGS (10)
  1. MORPHINE [Suspect]
     Indication: POSTOPERATIVE ANALGESIA
     Dosage: 100 UG/KG 40 MINUTES BEFORE EXTUBATION
     Route: 042
  2. MORPHINE [Suspect]
     Dosage: 4.4 UG/KG/H CONTINUOUS INFUSION
     Route: 042
  3. FENTANYL [Suspect]
     Indication: ANAESTHESIA
     Dosage: 5 ?G/KG, UNK
  4. FENTANYL [Suspect]
     Dosage: 2 ?G/KG, UNK
  5. FENTANYL [Suspect]
     Dosage: 2 ?G/KG, 45 MINUTES BEFORE EXTUBATION
  6. PROPOFOL [Suspect]
     Indication: MUSCLE RIGIDITY
     Dosage: 2 MG/KG, UNK
     Route: 042
  7. PROPOFOL [Suspect]
     Indication: LARYNGOSPASM
  8. THIOPENTAL SODIUM [Concomitant]
     Indication: ANAESTHESIA
     Dosage: UNK
  9. CISATRACURIUM BESYLATE [Concomitant]
     Indication: ANAESTHESIA
     Dosage: UNK
  10. ISOFLURANE [Concomitant]
     Indication: ANAESTHESIA
     Dosage: UNK

REACTIONS (3)
  - INFANTILE APNOEIC ATTACK [None]
  - LARYNGOSPASM [None]
  - MUSCLE RIGIDITY [None]
